FAERS Safety Report 5833793-7 (Version None)
Quarter: 2008Q3

REPORT INFORMATION
  Report Type: 
  Country: None (occurrence: None)
  Receive Date: 20080805
  Receipt Date: 20080805
  Transmission Date: 20090109
  Serious: Yes (Other)
  Sender: FDA-Public Use
  Company Number: A0741094A

PATIENT
  Age: 71 Year
  Sex: Female
  Weight: 90.9 kg

DRUGS (11)
  1. ALLI [Suspect]
     Indication: WEIGHT LOSS DIET
     Route: 048
     Dates: start: 20080701
  2. AMARYL [Concomitant]
  3. RANITIDINE HCL [Concomitant]
  4. ZOCOR [Concomitant]
  5. CENTRUM [Concomitant]
  6. GYMNEMA SYLVESTRE [Concomitant]
  7. BITTER MELON [Concomitant]
  8. GARLIC [Concomitant]
  9. CORAL CALCIUM [Concomitant]
  10. BILBERRY [Concomitant]
  11. GLUCOSAMINE [Concomitant]

REACTIONS (6)
  - ANAL HAEMORRHAGE [None]
  - FREQUENT BOWEL MOVEMENTS [None]
  - HAEMORRHOIDAL HAEMORRHAGE [None]
  - RECTAL DISCHARGE [None]
  - RECTAL HAEMORRHAGE [None]
  - STEATORRHOEA [None]
